FAERS Safety Report 8437071-1 (Version None)
Quarter: 2012Q2

REPORT INFORMATION
  Report Type: 
  Country: None (occurrence: None)
  Receive Date: 20120614
  Receipt Date: 20120228
  Transmission Date: 20120825
  Serious: Yes (Other)
  Sender: FDA-Public Use
  Company Number: US-AMGEN-USASP2011018111

PATIENT
  Age: 61 Year
  Sex: Female
  Weight: 55.329 kg

DRUGS (27)
  1. PROLIA [Suspect]
     Indication: OSTEOPOROSIS
     Dosage: 60 MG, Q6MO
     Route: 058
     Dates: start: 20101231
  2. PROAMATINE [Concomitant]
     Dosage: UNK
     Dates: start: 20080412
  3. IMODIUM [Concomitant]
     Dosage: UNK
     Dates: start: 20080225
  4. NEURONTIN [Concomitant]
     Dosage: UNK
     Dates: start: 20080225
  5. LEXAPRO [Concomitant]
     Dosage: UNK
     Dates: start: 20070907
  6. PROBIOTIC [Concomitant]
     Dosage: UNK
     Dates: start: 20080610
  7. QUALAQUIN [Concomitant]
     Dosage: UNK
     Dates: start: 20080303
  8. XANAX [Concomitant]
     Dosage: UNK
     Dates: start: 20070917
  9. CALCIUM CARBONATE [Concomitant]
     Dosage: UNK
  10. CALCIUM CARBONATE [Concomitant]
     Dosage: 500 MG, UNK
     Dates: start: 20081008
  11. LONOX [Concomitant]
     Dosage: UNK
     Dates: start: 20080412
  12. ERGOCALCIFEROL [Concomitant]
     Dosage: UNK
     Dates: start: 20080308
  13. ASPIRIN [Concomitant]
     Dosage: UNK
     Dates: start: 20070917
  14. PREDNISONE TAB [Concomitant]
     Dosage: UNK
  15. LEUCOVORIN CALCIUM [Concomitant]
     Dosage: UNK
  16. FOSRENOL [Concomitant]
     Dosage: UNK
     Dates: start: 20080606
  17. PROTONIX [Concomitant]
     Dosage: UNK
     Dates: start: 20080412
  18. HYDROXYZINE [Concomitant]
     Dosage: UNK
     Dates: start: 20080225
  19. ALLOPURINOL [Concomitant]
     Dosage: UNK
     Dates: start: 20070917
  20. ACTONEL [Concomitant]
  21. ROCALTROL [Concomitant]
     Dosage: 0.5 MG, UNK
     Dates: start: 20081008
  22. COMBIVENT [Concomitant]
     Dosage: UNK
     Dates: start: 20080822
  23. AMBIEN [Concomitant]
     Dosage: UNK
     Dates: start: 20080225
  24. ACIDOPHILIS [Concomitant]
     Dosage: UNK
     Dates: start: 20080225
  25. NEPHRO-VITE [Concomitant]
     Dosage: UNK
     Dates: start: 20070917
  26. REMICADE [Concomitant]
     Dosage: UNK
     Dates: start: 20070917
  27. HYDROCODONE [Concomitant]
     Dosage: UNK

REACTIONS (1)
  - HYPOCALCAEMIA [None]
